FAERS Safety Report 16143677 (Version 2)
Quarter: 2019Q2

REPORT INFORMATION
  Report Type: Spontaneous
  Country: US (occurrence: US)
  Receive Date: 20190401
  Receipt Date: 20190625
  Transmission Date: 20190711
  Serious: Yes (Other)
  Sender: FDA-Public Use
  Company Number: US-ASTRAZENECA-2019SE47338

PATIENT
  Age: 69 Year
  Sex: Male
  Weight: 74.4 kg

DRUGS (36)
  1. HYDROCODONE [Concomitant]
     Active Substance: HYDROCODONE
  2. AMOXICILLIN. [Concomitant]
     Active Substance: AMOXICILLIN
  3. PREDNISONE. [Concomitant]
     Active Substance: PREDNISONE
  4. NEXIUM [Suspect]
     Active Substance: ESOMEPRAZOLE MAGNESIUM
     Route: 048
     Dates: start: 1992, end: 2017
  5. CIPROFLOXACIN. [Concomitant]
     Active Substance: CIPROFLOXACIN
  6. LYRICA [Concomitant]
     Active Substance: PREGABALIN
  7. NIFEDIPINE. [Concomitant]
     Active Substance: NIFEDIPINE
  8. PANTOPRAZOLE [Suspect]
     Active Substance: PANTOPRAZOLE
     Dosage: 40 MG ONCE A DAY
     Route: 065
     Dates: start: 2009
  9. CELEBREX [Concomitant]
     Active Substance: CELECOXIB
  10. GABAPENTIN. [Concomitant]
     Active Substance: GABAPENTIN
  11. FUROSEMIDE. [Concomitant]
     Active Substance: FUROSEMIDE
  12. DOXAZOSIN [Concomitant]
     Active Substance: DOXAZOSIN\DOXAZOSIN MESYLATE
  13. IBUPROFEN. [Concomitant]
     Active Substance: IBUPROFEN
  14. NEXIUM [Suspect]
     Active Substance: ESOMEPRAZOLE MAGNESIUM
     Route: 048
     Dates: start: 20070916
  15. CYCLOBENZAPRINE. [Concomitant]
     Active Substance: CYCLOBENZAPRINE
  16. ACETAMINOPHEN. [Concomitant]
     Active Substance: ACETAMINOPHEN
  17. TRICOR [Concomitant]
     Active Substance: FENOFIBRATE
  18. DIFLUCAN [Concomitant]
     Active Substance: FLUCONAZOLE
  19. NEXIUM [Suspect]
     Active Substance: ESOMEPRAZOLE MAGNESIUM
     Dosage: 40 MG ONCE A DAY
     Route: 048
     Dates: start: 2001, end: 2007
  20. NYSTATIN. [Concomitant]
     Active Substance: NYSTATIN
  21. VENLAFAXINE [Concomitant]
     Active Substance: VENLAFAXINE HYDROCHLORIDE
  22. NEXIUM [Suspect]
     Active Substance: ESOMEPRAZOLE MAGNESIUM
     Dosage: GENERIC
     Route: 048
     Dates: start: 2008, end: 2017
  23. RABEPRAZOLE [Suspect]
     Active Substance: RABEPRAZOLE
     Dosage: 20 MG DAILY
     Route: 065
     Dates: start: 2002
  24. MELOXICAM. [Concomitant]
     Active Substance: MELOXICAM
  25. DIAZEPAM. [Concomitant]
     Active Substance: DIAZEPAM
  26. MICARDIS [Concomitant]
     Active Substance: TELMISARTAN
  27. GLIMEPIRIDE. [Concomitant]
     Active Substance: GLIMEPIRIDE
  28. MEPERIDINE [Concomitant]
     Active Substance: MEPERIDINE
  29. CEFUROXIME. [Concomitant]
     Active Substance: CEFUROXIME
  30. PRILOSEC [Suspect]
     Active Substance: OMEPRAZOLE MAGNESIUM
     Route: 048
     Dates: start: 1992, end: 2017
  31. PRILOSEC [Suspect]
     Active Substance: OMEPRAZOLE MAGNESIUM
     Dosage: 20 MG ONCE A DAY
     Route: 048
     Dates: start: 1989, end: 2001
  32. ACYCLOVIR. [Concomitant]
     Active Substance: ACYCLOVIR
  33. LEVAQUIN [Concomitant]
     Active Substance: LEVOFLOXACIN
  34. CEPHALEXIN. [Concomitant]
     Active Substance: CEPHALEXIN
  35. ZOLPIDEM [Concomitant]
     Active Substance: ZOLPIDEM\ZOLPIDEM TARTRATE
  36. CALCITRIOL. [Concomitant]
     Active Substance: CALCITRIOL

REACTIONS (3)
  - End stage renal disease [Not Recovered/Not Resolved]
  - Acute kidney injury [Not Recovered/Not Resolved]
  - Chronic kidney disease [Not Recovered/Not Resolved]

NARRATIVE: CASE EVENT DATE: 2011
